FAERS Safety Report 26160412 (Version 1)
Quarter: 2025Q4

REPORT INFORMATION
  Report Type: Spontaneous
  Country: US (occurrence: US)
  Receive Date: 20251216
  Receipt Date: 20251216
  Transmission Date: 20260118
  Serious: No
  Sender: ALVOGEN
  Company Number: US-ALVOGEN-2025096182

PATIENT
  Age: 68 Year
  Sex: Female

DRUGS (2)
  1. FENTANYL [Suspect]
     Active Substance: FENTANYL
     Indication: Complex regional pain syndrome
     Dosage: STRENGTH: 50 MCG/H?EXPIRATION DATE: MAY-2027?PICKED UP FROM THE PHARMACY ON 24-DEC-2024
  2. FENTANYL [Suspect]
     Active Substance: FENTANYL
     Indication: Complex regional pain syndrome
     Dosage: EXPIRATION DATE: MAY-2027?STRENGTH: 50 MCG/H
     Route: 062
     Dates: start: 2025

REACTIONS (7)
  - Pain [Unknown]
  - Hyperhidrosis [Unknown]
  - Device malfunction [Unknown]
  - Device adhesion issue [Unknown]
  - Wrong technique in device usage process [Unknown]
  - Drug effect less than expected [Unknown]
  - Device issue [Unknown]

NARRATIVE: CASE EVENT DATE: 20250101
